FAERS Safety Report 4367195-X (Version None)
Quarter: 2004Q2

REPORT INFORMATION
  Report Type: 
  Country: None (occurrence: None)
  Receive Date: 20040524
  Receipt Date: 20040510
  Transmission Date: 20050107
  Serious: Yes (Life-Threatening, Hospitalization)
  Sender: FDA-Public Use
  Company Number: US-JNJFOC-20031100823

PATIENT
  Age: 61 Year
  Sex: Female
  Weight: 53.978 kg

DRUGS (9)
  1. REMICADE [Suspect]
     Indication: RHEUMATOID ARTHRITIS
     Dosage: 400 MG, INTRAVENOUS
     Route: 042
     Dates: start: 20030601
  2. METHOTREXATE [Suspect]
     Indication: RHEUMATOID ARTHRITIS
     Dosage: 4 IN 1 WEEK
  3. FAMOTIDINE [Suspect]
  4. PREDNISONE TAB [Concomitant]
  5. NAPROSYN [Concomitant]
  6. DARVON [Concomitant]
  7. PREMPRO 14/14 [Concomitant]
  8. ACIPHEX [Concomitant]
  9. ALEVE [Concomitant]

REACTIONS (19)
  - ACUTE MYOCARDIAL INFARCTION [None]
  - ATRIAL FIBRILLATION [None]
  - CARDIAC FAILURE [None]
  - CARDIOGENIC SHOCK [None]
  - CATHETER SITE INFECTION [None]
  - CATHETER SITE INFLAMMATION [None]
  - CORONARY ARTERY STENOSIS [None]
  - DILATATION VENTRICULAR [None]
  - DYSPEPSIA [None]
  - EJECTION FRACTION DECREASED [None]
  - HEADACHE [None]
  - MALAISE [None]
  - MYOCARDIAL ISCHAEMIA [None]
  - OCULAR ICTERUS [None]
  - PULMONARY OEDEMA [None]
  - RESPIRATORY FAILURE [None]
  - THROMBOCYTOPENIA [None]
  - VENTRICULAR DYSFUNCTION [None]
  - WHITE BLOOD CELL COUNT DECREASED [None]
